FAERS Safety Report 10974020 (Version 2)
Quarter: 2015Q2

REPORT INFORMATION
  Report Type: Spontaneous
  Country: US (occurrence: US)
  Receive Date: 20150401
  Receipt Date: 20150424
  Transmission Date: 20150821
  Serious: Yes (Other)
  Sender: FDA-Public Use
  Company Number: US-BAYER-2015-071892

PATIENT
  Age: 34 Year
  Sex: Female
  Weight: 81.63 kg

DRUGS (6)
  1. CIPRO [Concomitant]
     Active Substance: CIPROFLOXACIN HYDROCHLORIDE
  2. LORCET PLUS [Concomitant]
     Active Substance: ACETAMINOPHEN\HYDROCODONE BITARTRATE
  3. VALIUM [Concomitant]
     Active Substance: DIAZEPAM
  4. VICOPROFEN [Concomitant]
     Active Substance: HYDROCODONE BITARTRATE\IBUPROFEN
  5. MOTRIN [Concomitant]
     Active Substance: IBUPROFEN
  6. MIRENA [Suspect]
     Active Substance: LEVONORGESTREL
     Indication: CONTRACEPTION
     Dosage: 20 MCG/24HR, CONT
     Route: 015
     Dates: start: 20080605, end: 20120530

REACTIONS (14)
  - Anxiety [None]
  - Device issue [None]
  - Infertility female [None]
  - Pain [None]
  - Emotional distress [None]
  - Procedural pain [None]
  - Weight increased [None]
  - Mood swings [None]
  - Marital problem [None]
  - Embedded device [None]
  - Device difficult to use [None]
  - Injury [None]
  - Vulvovaginal dryness [None]
  - Depression [None]

NARRATIVE: CASE EVENT DATE: 2010
